FAERS Safety Report 7384608-X (Version None)
Quarter: 2011Q1

REPORT INFORMATION
  Report Type: 
  Country: None (occurrence: None)
  Receive Date: 20110330
  Receipt Date: 20110323
  Transmission Date: 20110831
  Serious: Yes (Other)
  Sender: FDA-Public Use
  Company Number: CHPA2011US04403

PATIENT
  Age: 10 Year
  Sex: Female

DRUGS (1)
  1. TRIAMINIC NIGHT TIME COLD + COUGH [Suspect]
     Indication: NASOPHARYNGITIS
     Dosage: 2 TSP, ONCE/SINGLE
     Route: 048
     Dates: start: 20110321, end: 20110321

REACTIONS (4)
  - CONFUSIONAL STATE [None]
  - HALLUCINATION [None]
  - COORDINATION ABNORMAL [None]
  - FALL [None]
